FAERS Safety Report 20279065 (Version 1)
Quarter: 2022Q1

REPORT INFORMATION
  Report Type: Other
  Country: US (occurrence: None)
  Receive Date: 20220103
  Receipt Date: 20220103
  Transmission Date: 20220424
  Serious: Yes (Other)
  Sender: FDA-Public Use
  Company Number: US-ROCHE-2986905

PATIENT
  Sex: Female
  Weight: 86.260 kg

DRUGS (5)
  1. HERCEPTIN [Suspect]
     Active Substance: TRASTUZUMAB
     Indication: HER2 positive breast cancer
     Dosage: ONGOING YES
     Route: 065
     Dates: start: 2021
  2. TAXOL [Suspect]
     Active Substance: PACLITAXEL
     Indication: Product used for unknown indication
     Route: 065
  3. AMLODIPINE [Concomitant]
     Active Substance: AMLODIPINE BESYLATE
     Indication: Hypertension
     Dosage: ONGOING NO .
     Route: 048
     Dates: end: 202102
  4. METOPROLOL [Concomitant]
     Active Substance: METOPROLOL
     Indication: Hypertension
     Dosage: ONGOING YES
     Route: 048
     Dates: start: 202102
  5. ELIQUIS [Concomitant]
     Active Substance: APIXABAN
     Indication: Atrial fibrillation
     Dosage: ONGOING YES
     Route: 048
     Dates: start: 202102

REACTIONS (3)
  - Alopecia [Unknown]
  - Diarrhoea [Unknown]
  - Atrial fibrillation [Unknown]
